FAERS Safety Report 16897458 (Version 1)
Quarter: 2019Q4

REPORT INFORMATION
  Report Type: Spontaneous
  Country: US (occurrence: US)
  Receive Date: 20191009
  Receipt Date: 20191009
  Transmission Date: 20200122
  Serious: No
  Sender: FDA-Public Use
  Company Number: US-LUPIN PHARMACEUTICALS INC.-2019-01731

PATIENT
  Age: 59 Year
  Sex: Female
  Weight: 66 kg

DRUGS (5)
  1. AZITHROMYCIN TABLETS, 250 MG [Suspect]
     Active Substance: AZITHROMYCIN
     Indication: UPPER RESPIRATORY TRACT INFECTION
     Dosage: UNK UNK, QD, 2 TABLETS
     Route: 048
     Dates: start: 20190131
  2. TESSALON [Concomitant]
     Active Substance: BENZONATATE
     Indication: PRODUCT USED FOR UNKNOWN INDICATION
     Dosage: UNK
     Route: 065
  3. AZITHROMYCIN TABLETS, 250 MG [Suspect]
     Active Substance: AZITHROMYCIN
     Dosage: UNK, 1 TABLET
     Route: 048
     Dates: start: 20190201
  4. AZITHROMYCIN TABLETS, 250 MG [Suspect]
     Active Substance: AZITHROMYCIN
     Dosage: UNK UNK, QD, 1 TABLET
     Route: 048
     Dates: start: 20190203, end: 20190204
  5. AZITHROMYCIN TABLETS, 250 MG [Suspect]
     Active Substance: AZITHROMYCIN
     Dosage: UNK UNK, QD, 1 TABLET
     Route: 048
     Dates: start: 20190202

REACTIONS (3)
  - Rash erythematous [Recovered/Resolved]
  - Skin warm [Recovering/Resolving]
  - Swelling [Recovered/Resolved]

NARRATIVE: CASE EVENT DATE: 20190201
